FAERS Safety Report 7430530-X (Version None)
Quarter: 2011Q2

REPORT INFORMATION
  Report Type: 
  Country: None (occurrence: None)
  Receive Date: 20110421
  Receipt Date: 20100623
  Transmission Date: 20111010
  Serious: No
  Sender: FDA-Public Use
  Company Number: US-ASTRAZENECA-2010SE29374

PATIENT
  Age: 48 Year
  Sex: Female
  Weight: 65.8 kg

DRUGS (7)
  1. METOPROLOL SUCCINATE [Suspect]
     Route: 048
     Dates: start: 20100616
  2. LEVOXYL [Concomitant]
  3. METOPROLOL SUCCINATE [Suspect]
     Indication: PALPITATIONS
     Route: 048
     Dates: start: 20100301, end: 20100616
  4. METOPROLOL SUCCINATE [Suspect]
     Indication: HYPERTENSION
     Route: 048
     Dates: start: 20100301, end: 20100616
  5. METOPROLOL SUCCINATE [Suspect]
     Route: 048
     Dates: start: 20100616
  6. METOPROLOL SUCCINATE [Suspect]
     Indication: TACHYCARDIA
     Route: 048
     Dates: start: 20100301, end: 20100616
  7. METOPROLOL SUCCINATE [Suspect]
     Route: 048
     Dates: start: 20100616

REACTIONS (2)
  - PHOTOPHOBIA [None]
  - VISION BLURRED [None]
